FAERS Safety Report 5051353-5 (Version None)
Quarter: 2006Q3

REPORT INFORMATION
  Report Type: 
  Country: None (occurrence: None)
  Receive Date: 20060714
  Receipt Date: 20060619
  Transmission Date: 20061208
  Serious: Yes (Other)
  Sender: FDA-Public Use
  Company Number: JP-MERCK-0607USA00875

PATIENT
  Age: 66 Year
  Sex: Female
  Weight: 40 kg

DRUGS (6)
  1. ZOCOR [Suspect]
     Indication: HYPERLIPIDAEMIA
     Route: 048
     Dates: start: 20010919, end: 20020513
  2. CERIVASTATIN SODIUM [Suspect]
     Route: 048
     Dates: start: 20000419, end: 20010718
  3. VITAMIN E NICOTINATE [Suspect]
     Route: 048
     Dates: start: 20020729, end: 20031120
  4. PRAVASTATIN SODIUM [Suspect]
     Route: 048
     Dates: start: 20031120, end: 20040117
  5. PROBUCOL [Suspect]
     Route: 048
     Dates: start: 20040812, end: 20051019
  6. PROBUCOL [Suspect]
     Route: 048
     Dates: start: 20051020, end: 20060529

REACTIONS (1)
  - CONJUNCTIVAL HAEMORRHAGE [None]
